FAERS Safety Report 5386983-4 (Version None)
Quarter: 2007Q3

REPORT INFORMATION
  Report Type: 
  Country: None (occurrence: None)
  Receive Date: 20070713
  Receipt Date: 20070709
  Transmission Date: 20080115
  Serious: Yes (Hospitalization, Other)
  Sender: FDA-Public Use
  Company Number: FR-PFIZER INC-2007055829

PATIENT
  Age: 35 Year
  Sex: Male

DRUGS (2)
  1. CEFPODOXIME PROXETIL TABLET [Suspect]
     Indication: VIRAL INFECTION
     Route: 048
     Dates: start: 20060901, end: 20060901
  2. ACETAMINOPHEN [Concomitant]
     Dosage: TEXT:3 TABLETS
     Route: 048

REACTIONS (11)
  - ABDOMINAL PAIN [None]
  - ASTHENIA [None]
  - EAR PAIN [None]
  - FALL [None]
  - JAUNDICE [None]
  - LIVER INJURY [None]
  - MALAISE [None]
  - RESTLESS LEGS SYNDROME [None]
  - TACHYCARDIA [None]
  - VERTIGO [None]
  - VOMITING [None]
